FAERS Safety Report 19020355 (Version 1)
Quarter: 2021Q1

REPORT INFORMATION
  Report Type: Report from Study
  Country: GR (occurrence: GR)
  Receive Date: 20210317
  Receipt Date: 20210317
  Transmission Date: 20210420
  Serious: Yes (Other)
  Sender: FDA-Public Use
  Company Number: GR-JNJFOC-20210321138

PATIENT

DRUGS (4)
  1. DARZALEX [Suspect]
     Active Substance: DARATUMUMAB
     Indication: PLASMA CELL MYELOMA
     Dosage: FOR CYCLES 1?2 EVERY 2 WEEKS FOR CYCLES 3?6 AND EVERY 4 WEEKS THERE AFTER
     Route: 042
  2. CARFILZOMIB [Suspect]
     Active Substance: CARFILZOMIB
     Indication: PLASMA CELL MYELOMA
     Dosage: ON DAY?1 (C1D1) AND 2 (C1D2) OF CYCLE 1
     Route: 065
  3. DEXAMETHAZONE [Suspect]
     Active Substance: DEXAMETHASONE
     Indication: PLASMA CELL MYELOMA
     Dosage: ON DAYS?1,8 AND 15 OF 28 ?DAY CYCLES
     Route: 065
  4. CARFILZOMIB [Suspect]
     Active Substance: CARFILZOMIB
     Dosage: AFTER THE FIRST AND SECOND DAY OF CYCLE?1
     Route: 065

REACTIONS (3)
  - Hypertension [Unknown]
  - Acute coronary syndrome [Unknown]
  - Cardiac failure [Unknown]
